FAERS Safety Report 22611265 (Version 1)
Quarter: 2023Q2

REPORT INFORMATION
  Report Type: Report from Study
  Country: DE (occurrence: DE)
  Receive Date: 20230616
  Receipt Date: 20230616
  Transmission Date: 20230721
  Serious: Yes (Death, Life-Threatening, Hospitalization)
  Sender: FDA-Public Use
  Company Number: None

PATIENT
  Age: 81 Year
  Sex: Female

DRUGS (82)
  1. ALBUMIN HUMAN [Suspect]
     Active Substance: ALBUMIN HUMAN
     Indication: Product used for unknown indication
     Dosage: DOSE: 2X100ML
     Route: 042
     Dates: start: 20050208, end: 20050210
  2. ALBUMIN HUMAN [Suspect]
     Active Substance: ALBUMIN HUMAN
     Dosage: DOSE: 3X100 ML. INDICATION REPORTED AS SUBSTITUTION.
     Route: 042
     Dates: start: 20050203, end: 20050205
  3. HETASTARCH [Suspect]
     Active Substance: HETASTARCH
     Indication: Product used for unknown indication
     Dosage: UNK
     Dates: start: 20050221, end: 20050223
  4. HETASTARCH [Suspect]
     Active Substance: HETASTARCH
     Dosage: UNK
     Dates: start: 20050302
  5. HETASTARCH [Suspect]
     Active Substance: HETASTARCH
     Dosage: DOSE: 5-0
     Dates: start: 20050207, end: 20050209
  6. HETASTARCH [Suspect]
     Active Substance: HETASTARCH
     Dosage: DOSE: 51
     Dates: start: 20050215, end: 20050215
  7. HETASTARCH [Suspect]
     Active Substance: HETASTARCH
     Dosage: DOSE: 51-2
     Dates: start: 20050213, end: 20050213
  8. HETASTARCH [Suspect]
     Active Substance: HETASTARCH
     Dosage: FORM: INFUSION, DOSE: 130/0
     Dates: start: 20050201, end: 20050203
  9. HETASTARCH [Suspect]
     Active Substance: HETASTARCH
     Dosage: UNK
     Dates: start: 20050226, end: 20050228
  10. CYTOBION [Concomitant]
     Dosage: 1000 MICROGRAM
     Dates: start: 20050225, end: 20050227
  11. SULBACTAM SODIUM [Suspect]
     Active Substance: SULBACTAM SODIUM
     Indication: Product used for unknown indication
     Dosage: 1.5 GRAM, QD
     Dates: start: 20050127, end: 20050215
  12. CALCIUM [Suspect]
     Active Substance: CALCIUM
     Dates: start: 20050201, end: 20050215
  13. CALCIUM [Suspect]
     Active Substance: CALCIUM
     Dosage: UNK
     Dates: start: 20050204, end: 20050216
  14. VERAPAMIL [Concomitant]
     Active Substance: VERAPAMIL HYDROCHLORIDE
     Dates: start: 20050127
  15. MINERALS [Suspect]
     Active Substance: MINERALS
     Indication: Product used for unknown indication
     Dosage: 20 MILLILITER, QD
     Dates: start: 20050201, end: 20050203
  16. MINERALS [Suspect]
     Active Substance: MINERALS
     Dosage: UNK
     Dates: start: 20050303, end: 20050303
  17. MINERALS [Suspect]
     Active Substance: MINERALS
     Dosage: UNK
     Dates: start: 20050214, end: 20050215
  18. NOVALGIN (METAMIZOLE SODIUM) [Suspect]
     Active Substance: METAMIZOLE SODIUM
     Indication: Pain
     Dosage: 5 GRAM, QD
     Dates: start: 20050217, end: 20050226
  19. NOVALGIN (METAMIZOLE SODIUM) [Suspect]
     Active Substance: METAMIZOLE SODIUM
     Dosage: 1 GRAM, QD
     Dates: start: 20050302, end: 20050302
  20. ASPIRIN [Suspect]
     Active Substance: ASPIRIN
     Indication: Thrombosis
     Dosage: 500 MILLIGRAM, QD
     Dates: start: 20050208
  21. ASPIRIN [Suspect]
     Active Substance: ASPIRIN
     Dosage: 500 MILLIGRAM, QD
     Dates: start: 20050210
  22. ASPIRIN [Suspect]
     Active Substance: ASPIRIN
     Dosage: 500 MILLIGRAM, QD
     Dates: start: 20050212
  23. ASPIRIN [Suspect]
     Active Substance: ASPIRIN
     Dosage: 500 MILLIGRAM, QD
     Dates: start: 20050214
  24. ASPIRIN [Suspect]
     Active Substance: ASPIRIN
     Dosage: 500 MILLIGRAM, QD
     Dates: start: 20050216
  25. ASPIRIN [Suspect]
     Active Substance: ASPIRIN
     Dosage: 1500 MILLIGRAM, QD
     Dates: start: 20050128, end: 20050206
  26. INSULIN HUMAN [Suspect]
     Active Substance: INSULIN HUMAN
     Indication: Blood glucose abnormal
     Dosage: STRENGTH: 50IE
     Dates: start: 20050126, end: 20050303
  27. RANITIDINE [Concomitant]
     Active Substance: RANITIDINE
     Dates: start: 20050126
  28. KONAKION [Concomitant]
     Active Substance: PHYTONADIONE
     Dosage: DOSE: 2X10
     Dates: start: 20050207, end: 20050207
  29. METOCLOPRAMIDE [Suspect]
     Active Substance: METOCLOPRAMIDE
     Indication: Nausea
     Dosage: UNK
     Dates: start: 20050216, end: 20050219
  30. METOCLOPRAMIDE [Suspect]
     Active Substance: METOCLOPRAMIDE
     Dosage: DOSE: 3X1 AMP
     Dates: start: 20050205, end: 20050208
  31. CASPOFUNGIN [Suspect]
     Active Substance: CASPOFUNGIN
     Indication: Candida infection
     Dosage: 70 MILLIGRAM, QD
     Dates: start: 20050209, end: 20050215
  32. CASPOFUNGIN [Suspect]
     Active Substance: CASPOFUNGIN
     Dosage: 50 MILLIGRAM, QD
     Dates: start: 20050224, end: 20050303
  33. PROPOFOL [Concomitant]
     Active Substance: PROPOFOL
     Dates: start: 20050126
  34. CEFOTAXIME [Concomitant]
     Active Substance: CEFOTAXIME SODIUM
     Dates: start: 20050126
  35. CLEMASTINE [Concomitant]
     Active Substance: CLEMASTINE
     Indication: Pruritus
     Dates: start: 20050303, end: 20050303
  36. SPIRONOLACTONE [Suspect]
     Active Substance: SPIRONOLACTONE
     Indication: Oedema
     Dosage: 200 MILLIGRAM, QD
     Dates: start: 20050206, end: 20050303
  37. METRONIDAZOLE [Concomitant]
     Active Substance: METRONIDAZOLE
     Indication: Small intestinal perforation
     Dosage: 1 GRAM, QD
     Dates: start: 20050224, end: 20050303
  38. LINEZOLID [Concomitant]
     Active Substance: LINEZOLID
     Dates: start: 20050304
  39. VANCOMYCIN [Suspect]
     Active Substance: VANCOMYCIN
     Indication: Product used for unknown indication
     Dosage: UNK
     Dates: start: 20050302
  40. VANCOMYCIN [Suspect]
     Active Substance: VANCOMYCIN
     Dosage: 0.5 GRAM, QD
     Dates: start: 20050209, end: 20050221
  41. VANCOMYCIN [Suspect]
     Active Substance: VANCOMYCIN
     Dosage: UNK
     Dates: start: 20050224, end: 20050224
  42. VANCOMYCIN [Suspect]
     Active Substance: VANCOMYCIN
     Dosage: UNK
     Dates: start: 20050131
  43. VANCOMYCIN [Suspect]
     Active Substance: VANCOMYCIN
     Dosage: 1 GRAM, QD
     Dates: end: 20050206
  44. PERIAMIN X [Suspect]
     Active Substance: AMINO ACIDS\ELECTROLYTES NOS\XYLITOL
     Indication: Product used for unknown indication
     Dates: start: 20050224, end: 20050224
  45. CLONIDINE [Concomitant]
     Active Substance: CLONIDINE
     Dates: start: 20050131
  46. FUROSEMIDE [Suspect]
     Active Substance: FUROSEMIDE
     Indication: Polyuria
     Dosage: STRENGTH: 125 MG, DOSE: 4 X 10MG
     Dates: start: 20050224, end: 20050227
  47. FUROSEMIDE [Suspect]
     Active Substance: FUROSEMIDE
     Dosage: STRENGTH: 125 MG, DOSE: 4X20MG
     Dates: start: 20050204, end: 20050216
  48. FERRLECIT [Concomitant]
     Active Substance: SODIUM FERRIC GLUCONATE COMPLEX
     Dates: start: 20050225, end: 20050303
  49. METOPROLOL TARTRATE [Concomitant]
     Active Substance: METOPROLOL TARTRATE
     Indication: Cardiac failure
     Dates: start: 20050228, end: 20050303
  50. METOPROLOL TARTRATE [Concomitant]
     Active Substance: METOPROLOL TARTRATE
     Dosage: UNK
     Dates: start: 20050127
  51. ENOXAPARIN SODIUM [Suspect]
     Active Substance: ENOXAPARIN SODIUM
     Indication: Thrombosis
     Dosage: 40 MILLIGRAM, QD
     Dates: start: 20050217, end: 20050303
  52. NOREPINEPHRINE HYDROCHLORIDE, (+/-)- [Suspect]
     Active Substance: NOREPINEPHRINE HYDROCHLORIDE, (+/-)-
     Indication: Product used for unknown indication
     Dates: start: 20050126, end: 20050203
  53. NOREPINEPHRINE HYDROCHLORIDE, (+/-)- [Suspect]
     Active Substance: NOREPINEPHRINE HYDROCHLORIDE, (+/-)-
     Dosage: UNK
     Dates: start: 20050224, end: 20230303
  54. NOREPINEPHRINE HYDROCHLORIDE, (+/-)- [Suspect]
     Active Substance: NOREPINEPHRINE HYDROCHLORIDE, (+/-)-
     Dosage: UNK
     Dates: start: 20050208, end: 20230217
  55. METRONIDAZOLE [Concomitant]
     Active Substance: METRONIDAZOLE
     Dates: start: 20050126
  56. DIFLUCAN [Suspect]
     Active Substance: FLUCONAZOLE
     Indication: Fungal infection
     Dates: start: 20050131, end: 20050210
  57. FLUIMUCIL [Suspect]
     Active Substance: ACETYLCYSTEINE
     Indication: Product used for unknown indication
     Dates: start: 20050126, end: 20050302
  58. PIPERACILLIN [Suspect]
     Active Substance: PIPERACILLIN
     Indication: Product used for unknown indication
     Dosage: 12 GRAM, QD
     Dates: start: 20050127, end: 20050215
  59. DOBUTAMINE [Suspect]
     Active Substance: DOBUTAMINE HYDROCHLORIDE
     Indication: Product used for unknown indication
     Dosage: INDICATION REPORTED AS CIRCULATORY REGULATION
     Dates: start: 20050126, end: 20050203
  60. DOBUTAMINE [Suspect]
     Active Substance: DOBUTAMINE HYDROCHLORIDE
     Dosage: UNK
     Dates: start: 20050209, end: 20050217
  61. PIRITRAMIDE [Suspect]
     Active Substance: PIRITRAMIDE
     Indication: Pain
     Dosage: DOSE: 2X45 30 MG 40 MG
     Dates: start: 20050214, end: 20050216
  62. POTASSIUM CHLORIDE [Concomitant]
     Active Substance: POTASSIUM CHLORIDE
  63. DIGITOXIN [Concomitant]
     Active Substance: DIGITOXIN
     Dates: start: 20050202
  64. ENOXAPARIN [Suspect]
     Active Substance: ENOXAPARIN
     Dates: start: 20050126
  65. CLINOMEL [Concomitant]
     Active Substance: AMINO ACIDS\DEXTROSE\ELECTROLYTES NOS\SOYBEAN OIL
     Dosage: 1000 MILLILITER
     Dates: start: 20050129, end: 20050206
  66. OMEPRAZOLE [Suspect]
     Active Substance: OMEPRAZOLE
     Indication: Prophylaxis
     Dosage: 40 MILLIGRAM, QD
     Dates: start: 20050127, end: 20050303
  67. MIDAZOLAM MALEATE [Concomitant]
     Active Substance: MIDAZOLAM MALEATE
     Dates: start: 20050128
  68. FENOTEROL HYDROBROMIDE\IPRATROPIUM BROMIDE [Concomitant]
     Active Substance: FENOTEROL HYDROBROMIDE\IPRATROPIUM BROMIDE
     Indication: Dyspnoea
     Dosage: DOSE: 4X2???ROA-RESPIRATORY(INHALATION)
     Dates: start: 20050201, end: 20050206
  69. HYDROCORTISONE [Concomitant]
     Active Substance: HYDROCORTISONE
     Dosage: 60 MILLIGRAM
     Dates: start: 20050202, end: 20050206
  70. MIDAZOLAM [Suspect]
     Active Substance: MIDAZOLAM
     Indication: Sedation
     Dosage: 45 MILLIGRAM
     Dates: start: 20050201, end: 20050213
  71. DIGITOXIN [Concomitant]
     Active Substance: DIGITOXIN
     Dates: start: 20050126
  72. CALCIUM ACETATE/MAGNESIUM ACETATE/POTASSIUM ACETATE/POTASSIUM CHLORID+ [Concomitant]
     Indication: Fluid replacement
     Dosage: DRUG: JONO, FORM: INFUSION
     Dates: start: 20050301, end: 20050303
  73. ERYTHROMYCIN [Suspect]
     Active Substance: ERYTHROMYCIN
     Indication: Product used for unknown indication
     Dosage: 400 MILLIGRAM, QD
     Dates: start: 20050214, end: 20050219
  74. ERYTHROMYCIN [Suspect]
     Active Substance: ERYTHROMYCIN
     Dosage: 300 MILLIGRAM, QD
     Dates: start: 20050205, end: 20050207
  75. FOLIC ACID [Concomitant]
     Active Substance: FOLIC ACID
     Dates: start: 20050226, end: 20050303
  76. POTASSIUM CHLORIDE [Concomitant]
     Active Substance: POTASSIUM CHLORIDE
     Indication: Hypokalaemia
     Dosage: FORM: INFUSION, DOSE: 50MVAL
     Dates: start: 20050301, end: 20050303
  77. TUTOFUSIN [AMINO ACIDS NOS;ELECTROLYTES NOS;VITAMINS NOS] [Concomitant]
     Dates: start: 20050126
  78. SUFENTANIL [Suspect]
     Active Substance: SUFENTANIL
     Indication: Analgesic therapy
     Dates: start: 20050203, end: 20050213
  79. HEPARIN SODIUM [Suspect]
     Active Substance: HEPARIN SODIUM
     Indication: Thrombosis
     Dosage: STRENGTH: 10000IE
     Dates: start: 20050128, end: 20050216
  80. LEVOFLOXACIN [Concomitant]
     Active Substance: LEVOFLOXACIN
     Indication: Small intestinal perforation
     Dosage: DOSE: 2X500MG
     Dates: start: 20050224, end: 20050303
  81. DEXTROSE [Suspect]
     Active Substance: DEXTROSE\DEXTROSE MONOHYDRATE
     Indication: Product used for unknown indication
     Dosage: 100 MILLILITER
     Dates: start: 20050206, end: 20050218
  82. DIETARY SUPPLEMENT [Suspect]
     Active Substance: DIETARY SUPPLEMENT
     Indication: Product used for unknown indication
     Dosage: 250 MILLILITER
     Dates: start: 20050205, end: 20050224

REACTIONS (6)
  - Toxic epidermal necrolysis [Fatal]
  - Rash [Fatal]
  - Epidermolysis [Fatal]
  - Dermatitis bullous [Fatal]
  - Stevens-Johnson syndrome [Fatal]
  - Urticaria [Fatal]

NARRATIVE: CASE EVENT DATE: 20050223
